FAERS Safety Report 17879509 (Version 1)
Quarter: 2020Q2

REPORT INFORMATION
  Report Type: Spontaneous
  Country: US (occurrence: US)
  Receive Date: 20200610
  Receipt Date: 20200610
  Transmission Date: 20200714
  Serious: No
  Sender: FDA-Public Use
  Company Number: US-TOLMAR, INC.-20US021471

PATIENT
  Sex: Female

DRUGS (1)
  1. AZELAIC ACID. [Suspect]
     Active Substance: AZELAIC ACID
     Indication: ROSACEA
     Dosage: UNK
     Route: 065

REACTIONS (2)
  - Dry skin [Unknown]
  - Drug ineffective [Unknown]
